FAERS Safety Report 11306465 (Version 2)
Quarter: 2015Q3

REPORT INFORMATION
  Report Type: Spontaneous
  Country: US (occurrence: US)
  Receive Date: 20150723
  Receipt Date: 20150907
  Transmission Date: 20151125
  Serious: No
  Sender: FDA-Public Use
  Company Number: US-ASTRAZENECA-2015SE70209

PATIENT
  Age: 10102 Day
  Sex: Male
  Weight: 97.1 kg

DRUGS (1)
  1. BYDUREON [Suspect]
     Active Substance: EXENATIDE
     Indication: TYPE 1 DIABETES MELLITUS
     Route: 058
     Dates: start: 201506

REACTIONS (3)
  - Depression [Recovered/Resolved]
  - Mood swings [Unknown]
  - Injection site nodule [Unknown]

NARRATIVE: CASE EVENT DATE: 20150613
